FAERS Safety Report 8028560-2 (Version None)
Quarter: 2012Q1

REPORT INFORMATION
  Report Type: 
  Country: None (occurrence: None)
  Receive Date: 20120106
  Receipt Date: 20110228
  Transmission Date: 20120608
  Serious: No
  Sender: FDA-Public Use
  Company Number: US-MYLANLABS-2011S1004200

PATIENT
  Age: 33 Year
  Sex: Female

DRUGS (9)
  1. COUGH ELIXIR [Concomitant]
  2. XANAX [Concomitant]
  3. AMBIEN [Concomitant]
  4. PRISTIQ [Concomitant]
  5. ZYRTEC [Concomitant]
  6. AZATHIOPRINE [Suspect]
     Indication: COLITIS ULCERATIVE
     Route: 048
     Dates: start: 20100101, end: 20100101
  7. IBUPROFEN (ADVIL) [Concomitant]
  8. AZATHIOPRINE [Suspect]
     Route: 048
     Dates: start: 20100101
  9. ACECOL [Concomitant]

REACTIONS (1)
  - MYALGIA [None]
